FAERS Safety Report 6195559-0 (Version None)
Quarter: 2009Q2

REPORT INFORMATION
  Report Type: 
  Country: None (occurrence: None)
  Receive Date: 20090519
  Receipt Date: 20090512
  Transmission Date: 20091009
  Serious: Yes (Hospitalization)
  Sender: FDA-Public Use
  Company Number: PHHY2009TW16740

PATIENT
  Age: 75 Year
  Sex: Female

DRUGS (1)
  1. ACLASTA [Suspect]
     Dosage: 5 MG, UNK
     Route: 042
     Dates: start: 20090414

REACTIONS (5)
  - ASTHENIA [None]
  - DECREASED APPETITE [None]
  - INSOMNIA [None]
  - TRIGEMINAL NEURALGIA [None]
  - WEIGHT DECREASED [None]
